FAERS Safety Report 4313212-2 (Version None)
Quarter: 2004Q1

REPORT INFORMATION
  Report Type: 
  Country: None (occurrence: None)
  Receive Date: 20040304
  Receipt Date: 20040218
  Transmission Date: 20041129
  Serious: Yes (Death)
  Sender: FDA-Public Use
  Company Number: CERZ-10522

PATIENT
  Age: 72 Year
  Sex: Female

DRUGS (2)
  1. CEREZYME [Suspect]
     Indication: GAUCHER'S DISEASE
     Dosage: 1400 UNITS IV
     Route: 042
     Dates: start: 20030701, end: 20040201
  2. CEREZYME [Suspect]
     Indication: GAUCHER'S DISEASE
     Dosage: 1600 UNITS IV
     Route: 042
     Dates: start: 20030701, end: 20040201

REACTIONS (1)
  - DEATH [None]
